FAERS Safety Report 16264111 (Version 1)
Quarter: 2019Q2

REPORT INFORMATION
  Report Type: Spontaneous
  Country: US (occurrence: US)
  Receive Date: 20190502
  Receipt Date: 20190502
  Transmission Date: 20190711
  Serious: No
  Sender: FDA-Public Use
  Company Number: US-BEH-2019101757

PATIENT
  Sex: Female

DRUGS (6)
  1. CEFTAZIDIME. [Concomitant]
     Active Substance: CEFTAZIDIME
  2. ALBUTEROL SULFATE. [Concomitant]
     Active Substance: ALBUTEROL SULFATE
  3. BUDESONIDE. [Concomitant]
     Active Substance: BUDESONIDE
  4. ATROVENT HFA [Concomitant]
     Active Substance: IPRATROPIUM BROMIDE
  5. HIZENTRA [Suspect]
     Active Substance: HUMAN IMMUNOGLOBULIN G
     Indication: IMMUNODEFICIENCY COMMON VARIABLE
     Dosage: 15 G, QOW
     Route: 058
  6. CEFDINIR. [Concomitant]
     Active Substance: CEFDINIR

REACTIONS (1)
  - Infection [Recovered/Resolved]
